FAERS Safety Report 10260573 (Version 1)
Quarter: 2014Q2

REPORT INFORMATION
  Report Type: Spontaneous
  Country: MX (occurrence: MX)
  Receive Date: 20140626
  Receipt Date: 20140626
  Transmission Date: 20141212
  Serious: Yes (Death)
  Sender: FDA-Public Use
  Company Number: MX-ROCHE-1424909

PATIENT
  Sex: Male

DRUGS (1)
  1. MIRCERA [Suspect]
     Indication: RENAL FAILURE CHRONIC
     Route: 065
     Dates: start: 2011, end: 2012

REACTIONS (2)
  - Death [Fatal]
  - Haemoglobin increased [Unknown]
